FAERS Safety Report 9921669 (Version 2)
Quarter: 2014Q1

REPORT INFORMATION
  Report Type: Report from Study
  Country: KR (occurrence: KR)
  Receive Date: 20140225
  Receipt Date: 20140313
  Transmission Date: 20141002
  Serious: Yes (Death)
  Sender: FDA-Public Use
  Company Number: KR-SA-2014SA018699

PATIENT
  Age: 66 Year
  Sex: Male
  Weight: 46 kg

DRUGS (3)
  1. LANTUS [Suspect]
     Indication: DIABETES MELLITUS
     Route: 058
     Dates: start: 20140117, end: 20140206
  2. AMARYL [Suspect]
     Indication: DIABETES MELLITUS
     Route: 048
     Dates: start: 20140117, end: 20140206
  3. GLUPA [Suspect]
     Indication: DIABETES MELLITUS
     Route: 065
     Dates: start: 20140117, end: 20140206

REACTIONS (3)
  - Septic shock [Fatal]
  - Asthenia [Unknown]
  - Hypophagia [Unknown]
